FAERS Safety Report 6956519-2 (Version None)
Quarter: 2010Q3

REPORT INFORMATION
  Report Type: 
  Country: None (occurrence: None)
  Receive Date: 20100830
  Receipt Date: 20100825
  Transmission Date: 20110219
  Serious: Yes (Death, Other)
  Sender: FDA-Public Use
  Company Number: US-BAYER-201019407BCC

PATIENT
  Age: 75 Year
  Sex: Male

DRUGS (20)
  1. ASPIRIN [Suspect]
     Indication: PULMONARY EMBOLISM
     Route: 048
     Dates: start: 20080320, end: 20080323
  2. HEPARIN SODIUM [Suspect]
     Indication: PULMONARY EMBOLISM
     Route: 040
     Dates: start: 20080320, end: 20080320
  3. HEPARIN SODIUM 5,000 UNITS IN DEXTROSE 5% [Suspect]
     Indication: PULMONARY EMBOLISM
     Route: 042
     Dates: start: 20080320, end: 20080323
  4. LENTE INSULIN [Concomitant]
  5. DILANTIN [Concomitant]
  6. GLUCOPHAGE [Concomitant]
  7. SODIUM CHLORIDE [Concomitant]
  8. WARFARIN SODIUM [Concomitant]
  9. ZOLPIDEM [Concomitant]
  10. BISACODYL [Concomitant]
  11. MILK OF MAGNESIA TAB [Concomitant]
  12. PROCHLORPERAZINE [Concomitant]
  13. ACETAMINOPHEN [Concomitant]
  14. INSULIN GLARGINE [Concomitant]
  15. DEXTROSE [Concomitant]
  16. ONDANSETRON [Concomitant]
  17. ESOMEPRAZOLE MAGNESIUM [Concomitant]
  18. SIMVASTATIN [Concomitant]
  19. HYDROCODONE [Concomitant]
  20. LANTUS [Concomitant]

REACTIONS (12)
  - APHASIA [None]
  - CEREBRAL DISORDER [None]
  - COAGULATION TIME PROLONGED [None]
  - EPISTAXIS [None]
  - HEPATIC FAILURE [None]
  - HYPERHIDROSIS [None]
  - MOBILITY DECREASED [None]
  - NAUSEA [None]
  - ORGAN FAILURE [None]
  - PHARYNGEAL OEDEMA [None]
  - RENAL FAILURE [None]
  - UNRESPONSIVE TO STIMULI [None]
